FAERS Safety Report 9088546 (Version 2)
Quarter: 2013Q1

REPORT INFORMATION
  Report Type: Report from Study
  Country: GR (occurrence: GR)
  Receive Date: 20130202
  Receipt Date: 20130319
  Transmission Date: 20140127
  Serious: Yes (Hospitalization)
  Sender: FDA-Public Use
  Company Number: GR-US-EMD SERONO, INC.-7190367

PATIENT
  Age: 6 Year
  Sex: Male

DRUGS (4)
  1. SAIZEN [Suspect]
     Indication: GROWTH HORMONE DEFICIENCY
     Route: 058
     Dates: start: 201109
  2. FLIXOTIDE [Concomitant]
     Indication: ASTHMA
  3. SINGULAIR [Concomitant]
     Indication: ASTHMA
  4. SALBUNOVA [Concomitant]
     Indication: ASTHMA

REACTIONS (2)
  - Oxygen saturation decreased [Recovered/Resolved]
  - Abdominal pain upper [Recovered/Resolved]
